FAERS Safety Report 4624320-0 (Version None)
Quarter: 2005Q1

REPORT INFORMATION
  Report Type: 
  Country: None (occurrence: None)
  Receive Date: 20050330
  Receipt Date: 20050330
  Transmission Date: 20050727
  Serious: No
  Sender: FDA-Public Use
  Company Number: None

PATIENT
  Sex: Female

DRUGS (1)
  1. FENTANYL [Suspect]
     Indication: OSTEOARTHRITIS
     Dosage: 75 MCG Q 72 H
     Dates: start: 20050316

REACTIONS (2)
  - DELIRIUM [None]
  - PHARMACEUTICAL PRODUCT COMPLAINT [None]
